FAERS Safety Report 9280212 (Version 1)
Quarter: 2013Q2

REPORT INFORMATION
  Report Type: Report from Study
  Country: US (occurrence: US)
  Receive Date: 20130509
  Receipt Date: 20130509
  Transmission Date: 20140414
  Serious: Yes (Other)
  Sender: FDA-Public Use
  Company Number: US-ROCHE-1220103

PATIENT
  Sex: 0

DRUGS (14)
  1. BEVACIZUMAB [Suspect]
     Indication: NON-SMALL CELL LUNG CANCER
     Route: 065
  2. ERLOTINIB [Suspect]
     Indication: NON-SMALL CELL LUNG CANCER
     Route: 065
  3. RITUXIMAB [Suspect]
     Indication: NON-SMALL CELL LUNG CANCER
     Route: 065
  4. CISPLATIN [Suspect]
     Indication: NON-SMALL CELL LUNG CANCER
     Route: 065
  5. CARBOPLATIN [Suspect]
     Indication: NON-SMALL CELL LUNG CANCER
     Route: 065
  6. GEMCITABINE [Suspect]
     Indication: NON-SMALL CELL LUNG CANCER
     Route: 065
  7. PACLITAXEL [Suspect]
     Indication: NON-SMALL CELL LUNG CANCER
     Route: 065
  8. ETOPOSIDE [Suspect]
     Indication: NON-SMALL CELL LUNG CANCER
     Route: 065
  9. CYCLOPHOSPHAMIDE [Suspect]
     Indication: NON-SMALL CELL LUNG CANCER
     Route: 065
  10. VINCRISTINE [Suspect]
     Indication: NON-SMALL CELL LUNG CANCER
     Route: 065
  11. OXALIPLATIN [Suspect]
     Indication: NON-SMALL CELL LUNG CANCER
     Route: 065
  12. FOLINIC ACID [Suspect]
     Indication: NON-SMALL CELL LUNG CANCER
     Route: 065
  13. FLUOROURACIL [Suspect]
     Indication: NON-SMALL CELL LUNG CANCER
     Route: 065
  14. CETUXIMAB [Suspect]
     Indication: NON-SMALL CELL LUNG CANCER
     Route: 065

REACTIONS (7)
  - Pneumonitis [Unknown]
  - Rib fracture [Unknown]
  - Pulmonary toxicity [Unknown]
  - Myositis [Unknown]
  - Pulmonary toxicity [Unknown]
  - Oesophagitis [Unknown]
  - Skin reaction [Unknown]
